FAERS Safety Report 7402359-X (Version None)
Quarter: 2011Q1

REPORT INFORMATION
  Report Type: 
  Country: None (occurrence: None)
  Receive Date: 20110330
  Receipt Date: 20110328
  Transmission Date: 20110831
  Serious: Yes (Hospitalization, Other)
  Sender: FDA-Public Use
  Company Number: FR-004723

PATIENT
  Age: 60 Year
  Sex: Male
  Weight: 100 kg

DRUGS (1)
  1. DEGARELIX (FIRMAGON) (240 MG, 80 MG) [Suspect]
     Indication: PROSTATE CANCER METASTATIC
     Dosage: (240 MG 1XSUBCUTANEOUS), (80 MG 1X/MONTH INTRAVENOUS DRIP)
     Route: 041
     Dates: start: 20110211

REACTIONS (1)
  - INCORRECT ROUTE OF DRUG ADMINISTRATION [None]
